FAERS Safety Report 7590048-0 (Version None)
Quarter: 2011Q3

REPORT INFORMATION
  Report Type: 
  Country: None (occurrence: None)
  Receive Date: 20110705
  Receipt Date: 20110614
  Transmission Date: 20111222
  Serious: Yes (Hospitalization)
  Sender: FDA-Public Use
  Company Number: A0934657A

PATIENT
  Age: 61 Year
  Sex: Female
  Weight: 77.3 kg

DRUGS (10)
  1. LIPITOR [Concomitant]
  2. AVANDAMET [Suspect]
     Route: 048
     Dates: start: 20041123
  3. LEVOTHYROXINE SODIUM [Concomitant]
  4. METFORMIN HCL [Concomitant]
  5. AVANDIA [Suspect]
     Indication: DIABETES MELLITUS
     Dosage: 2MG PER DAY
     Route: 048
     Dates: start: 20040803
  6. LYRICA [Concomitant]
  7. FOSAMAX [Concomitant]
  8. FEXOFENADINE [Concomitant]
  9. COREG [Concomitant]
  10. TRIAMTERENE [Concomitant]

REACTIONS (1)
  - STRESS CARDIOMYOPATHY [None]
